FAERS Safety Report 25685171 (Version 2)
Quarter: 2025Q3

REPORT INFORMATION
  Report Type: Report from Study
  Country: CA (occurrence: CA)
  Receive Date: 20250815
  Receipt Date: 20250916
  Transmission Date: 20251020
  Serious: Yes (Other)
  Sender: TAKEDA
  Company Number: CA-JNJFOC-20250520319

PATIENT
  Sex: Female

DRUGS (8)
  1. BORTEZOMIB [Suspect]
     Active Substance: BORTEZOMIB
     Indication: Plasma cell myeloma
  2. DEXAMETHASONE [Suspect]
     Active Substance: DEXAMETHASONE
     Indication: Plasma cell myeloma
  3. DARZALEX [Suspect]
     Active Substance: DARATUMUMAB
     Indication: Plasma cell myeloma
     Dosage: 1800 MILLIGRAM, 1/WEEK
     Dates: start: 20250610
  4. DARZALEX [Suspect]
     Active Substance: DARATUMUMAB
  5. LENALIDOMIDE [Suspect]
     Active Substance: LENALIDOMIDE
     Indication: Plasma cell myeloma
  6. MONTELUKAST [Suspect]
     Active Substance: MONTELUKAST
     Indication: Premedication
  7. MONTELUKAST [Suspect]
     Active Substance: MONTELUKAST
  8. FAMOTIDINE [Suspect]
     Active Substance: FAMOTIDINE
     Indication: Premedication

REACTIONS (4)
  - Blood stem cell harvest [Not Recovered/Not Resolved]
  - Stem cell transplant [Unknown]
  - Breast cancer [Not Recovered/Not Resolved]
  - Intentional product use issue [Unknown]
